FAERS Safety Report 7377844-X (Version None)
Quarter: 2011Q1

REPORT INFORMATION
  Report Type: 
  Country: None (occurrence: None)
  Receive Date: 20110328
  Receipt Date: 20110322
  Transmission Date: 20110831
  Serious: Yes (Other)
  Sender: FDA-Public Use
  Company Number: US-ROCHE-767032

PATIENT
  Sex: Female

DRUGS (3)
  1. PEGASYS [Suspect]
     Indication: HEPATITIS C
     Dosage: COMBINATION OF PEG-INTERFERON ALFA 2A AND RIBAVIRIN 48 WEEKS COMPLETED IN 10 YEARS TIME
     Route: 065
     Dates: start: 20020101
  2. RIBAVIRIN [Suspect]
     Indication: HEPATITIS C
     Dosage: 48 WEEKS THERAPY COMPLETED IN 10 YEARS TIME
     Route: 065
     Dates: start: 20020101
  3. PEGASYS [Suspect]
     Dosage: PRE-FILLED SYRINGE ONLY PEG-INTERFERON ALFA 2A
     Route: 065

REACTIONS (3)
  - FATIGUE [None]
  - LUNG DISORDER [None]
  - GASTROINTESTINAL HAEMORRHAGE [None]
